FAERS Safety Report 8845184 (Version 1)
Quarter: 2012Q4

REPORT INFORMATION
  Report Type: Spontaneous
  Country: FR (occurrence: None)
  Receive Date: 20121015
  Receipt Date: 20121015
  Transmission Date: 20130627
  Serious: Yes (Hospitalization)
  Sender: FDA-Public Use
  Company Number: DSA_60138_2012

PATIENT
  Age: 82 Year
  Sex: Female

DRUGS (13)
  1. FLAGYL [Suspect]
     Indication: INFECTION
     Dosage: 5mg/ml intravenous (not otherwise specified)
     Route: 042
     Dates: start: 20120818, end: 20120819
  2. ROCEPHINE [Suspect]
     Dosage: 1 G Intravenous (not otherwise specified))
     Dates: start: 20120812, end: 20120819
  3. AMOXICILLIN [Concomitant]
  4. MYSOLINE [Concomitant]
  5. DEPAKINE CHRONO [Concomitant]
  6. CORDARONE [Concomitant]
  7. OROCAL D(3) [Concomitant]
  8. DOLIPRANE [Concomitant]
  9. MODOPAR [Concomitant]
  10. MOTILIUM [Concomitant]
  11. TRANSIPEG [Concomitant]
  12. OGASTORO [Concomitant]
  13. LASILIX [Concomitant]

REACTIONS (6)
  - Infection [None]
  - Lung disorder [None]
  - Blood pressure increased [None]
  - Leukocytosis [None]
  - Pneumonia aspiration [None]
  - General physical health deterioration [None]
